FAERS Safety Report 19456669 (Version 1)
Quarter: 2021Q2

REPORT INFORMATION
  Report Type: Spontaneous
  Country: CA (occurrence: CA)
  Receive Date: 20210624
  Receipt Date: 20210624
  Transmission Date: 20210717
  Serious: Yes (Other)
  Sender: FDA-Public Use
  Company Number: CA-ROCHE-2854100

PATIENT
  Sex: Female

DRUGS (28)
  1. RITUXIMAB. [Suspect]
     Active Substance: RITUXIMAB
     Indication: NEUROMYELITIS OPTICA SPECTRUM DISORDER
  2. RITUXIMAB. [Suspect]
     Active Substance: RITUXIMAB
     Indication: RHEUMATOID ARTHRITIS
     Route: 042
  3. RITUXIMAB. [Suspect]
     Active Substance: RITUXIMAB
     Indication: NEUROMYELITIS OPTICA SPECTRUM DISORDER
  4. ALENDRONATE SODIUM. [Concomitant]
     Active Substance: ALENDRONATE SODIUM
     Indication: OSTEOPOROSIS
  5. CALCIUM [Concomitant]
     Active Substance: CALCIUM
     Indication: HYPERTENSION
  6. COSENTYX [Concomitant]
     Active Substance: SECUKINUMAB
  7. FERROUS GLUCONATE [Concomitant]
     Active Substance: FERROUS GLUCONATE
  8. PREDNISONE. [Concomitant]
     Active Substance: PREDNISONE
     Indication: RHEUMATOID ARTHRITIS
     Route: 065
  9. RITUXIMAB. [Suspect]
     Active Substance: RITUXIMAB
     Indication: CONNECTIVE TISSUE DISORDER
  10. HYDROMORPHONE [Concomitant]
     Active Substance: HYDROMORPHONE
  11. RITUXIMAB. [Suspect]
     Active Substance: RITUXIMAB
     Indication: CONNECTIVE TISSUE DISORDER
  12. MYCOPHENOLATE MOFETIL. [Concomitant]
     Active Substance: MYCOPHENOLATE MOFETIL
  13. METHYLPREDNISOLONE ACETATE. [Concomitant]
     Active Substance: METHYLPREDNISOLONE ACETATE
  14. ONDANSETRON [Concomitant]
     Active Substance: ONDANSETRON
  15. AMLODIPINE [Concomitant]
     Active Substance: AMLODIPINE BESYLATE
     Indication: HYPERTENSION
  16. INSULIN HUMAN [Concomitant]
     Active Substance: INSULIN HUMAN
     Indication: DIABETES MELLITUS
     Route: 065
  17. RABEPRAZOLE [Concomitant]
     Active Substance: RABEPRAZOLE
  18. RANITIDINE. [Concomitant]
     Active Substance: RANITIDINE
  19. PARIET [Concomitant]
     Active Substance: RABEPRAZOLE SODIUM
  20. PREDNISONE. [Concomitant]
     Active Substance: PREDNISONE
     Indication: NEUROMYELITIS OPTICA SPECTRUM DISORDER
  21. METHOTREXATE. [Concomitant]
     Active Substance: METHOTREXATE
     Route: 037
  22. ROSUVASTATIN CALCIUM. [Concomitant]
     Active Substance: ROSUVASTATIN CALCIUM
  23. SOLIRIS [Concomitant]
     Active Substance: ECULIZUMAB
     Indication: NEUROMYELITIS OPTICA SPECTRUM DISORDER
     Dosage: SINGLE USE, 300 MG/30ML
  24. TIZANIDINE. [Concomitant]
     Active Substance: TIZANIDINE
  25. ZOPICLONE [Concomitant]
     Active Substance: ZOPICLONE
  26. RITUXIMAB. [Suspect]
     Active Substance: RITUXIMAB
     Indication: RHEUMATOID ARTHRITIS
     Route: 065
  27. FOLIC ACID. [Concomitant]
     Active Substance: FOLIC ACID
  28. MELOXICAM. [Concomitant]
     Active Substance: MELOXICAM

REACTIONS (5)
  - Anaemia [Unknown]
  - Spinal cord injury [Unknown]
  - Arthralgia [Unknown]
  - Fatigue [Unknown]
  - Osteoporosis [Unknown]
